FAERS Safety Report 18144816 (Version 1)
Quarter: 2020Q3

REPORT INFORMATION
  Report Type: Spontaneous
  Country: US (occurrence: US)
  Receive Date: 20200813
  Receipt Date: 20200813
  Transmission Date: 20201103
  Serious: Yes (Hospitalization)
  Sender: FDA-Public Use
  Company Number: None

PATIENT
  Age: 37 Year
  Sex: Female
  Weight: 100.5 kg

DRUGS (1)
  1. ATEZOLIZUMBAB [Suspect]
     Active Substance: ATEZOLIZUMAB
     Indication: CERVIX CARCINOMA
     Dosage: ?          OTHER DOSE:800 CGY;OTHER ROUTE:RADIATION?
     Dates: start: 20200617, end: 20200622

REACTIONS (5)
  - Female genital tract fistula [None]
  - Anal fistula [None]
  - Mass [None]
  - Bone disorder [None]
  - Secretion discharge [None]

NARRATIVE: CASE EVENT DATE: 20200810
